FAERS Safety Report 5255765-6 (Version None)
Quarter: 2007Q1

REPORT INFORMATION
  Report Type: 
  Country: None (occurrence: None)
  Receive Date: 20070301
  Receipt Date: 20070219
  Transmission Date: 20070707
  Serious: Yes (Other)
  Sender: FDA-Public Use
  Company Number: 2007305602

PATIENT
  Sex: Female

DRUGS (1)
  1. NICORETTE [Suspect]
     Indication: SMOKING CESSATION THERAPY
     Dosage: 10 MG (1 IN 1 ), TRANSDERMAL
     Route: 062
     Dates: start: 20070125, end: 20070126

REACTIONS (2)
  - CHEST PAIN [None]
  - PAIN IN EXTREMITY [None]
